FAERS Safety Report 8035797-5 (Version None)
Quarter: 2012Q1

REPORT INFORMATION
  Report Type: 
  Country: None (occurrence: None)
  Receive Date: 20120111
  Receipt Date: 20120104
  Transmission Date: 20120608
  Serious: Yes (Other)
  Sender: FDA-Public Use
  Company Number: US-BRISTOL-MYERS SQUIBB COMPANY-16331860

PATIENT
  Age: 51 Year
  Sex: Female
  Weight: 79 kg

DRUGS (1)
  1. AVAPRO [Suspect]
     Indication: CARDIAC DISORDER
     Dates: start: 20110901

REACTIONS (3)
  - HYPERKERATOSIS [None]
  - EYE HAEMORRHAGE [None]
  - VISION BLURRED [None]
